FAERS Safety Report 11342711 (Version 10)
Quarter: 2017Q3

REPORT INFORMATION
  Report Type: Report from Study
  Country: US (occurrence: US)
  Receive Date: 20150805
  Receipt Date: 20170919
  Transmission Date: 20171127
  Serious: Yes (Hospitalization)
  Sender: FDA-Public Use
  Company Number: US-ACTELION-A-US2015-117902

PATIENT
  Age: 21 Year
  Sex: Female
  Weight: 57.14 kg

DRUGS (5)
  1. OPSUMIT [Suspect]
     Active Substance: MACITENTAN
     Indication: PULMONARY HYPERTENSION
     Dosage: 10 MG, QD
     Route: 048
     Dates: start: 20140827
  2. VELETRI [Suspect]
     Active Substance: EPOPROSTENOL
     Dosage: UNK
     Route: 042
  3. ADCIRCA [Concomitant]
     Active Substance: TADALAFIL
  4. VELETRI [Suspect]
     Active Substance: EPOPROSTENOL
     Dosage: UNK
     Route: 042
  5. VELETRI [Suspect]
     Active Substance: EPOPROSTENOL
     Indication: PULMONARY HYPERTENSION
     Dosage: 29 NG/KG, PER MIN
     Route: 042
     Dates: start: 20140326

REACTIONS (17)
  - Vision blurred [Unknown]
  - Pulmonary arterial hypertension [Unknown]
  - Chest discomfort [Unknown]
  - Cardiac failure [Unknown]
  - Fluid retention [Unknown]
  - Systemic lupus erythematosus [Unknown]
  - Migraine [Unknown]
  - Syncope [Unknown]
  - Fungal infection [Unknown]
  - Wound infection [Unknown]
  - Conjunctivitis [Unknown]
  - Anaemia [Unknown]
  - Rash [Not Recovered/Not Resolved]
  - Condition aggravated [Unknown]
  - Cardiac failure congestive [Unknown]
  - Chest pain [Unknown]
  - Dizziness [Unknown]
